FAERS Safety Report 5789166-9 (Version None)
Quarter: 2008Q2

REPORT INFORMATION
  Report Type: 
  Country: None (occurrence: None)
  Receive Date: 20080625
  Receipt Date: 20080625
  Transmission Date: 20081010
  Serious: No
  Sender: FDA-Public Use
  Company Number: None

PATIENT
  Age: 54 Year
  Sex: Male

DRUGS (1)
  1. VARENICLINE [Suspect]
     Indication: SMOKING CESSATION THERAPY
     Dosage: 1 MG BID PO
     Route: 048
     Dates: start: 20080407, end: 20080618

REACTIONS (8)
  - AGGRESSION [None]
  - AGITATION [None]
  - DEPRESSION [None]
  - IRRITABILITY [None]
  - LOSS OF EMPLOYMENT [None]
  - MOOD SWINGS [None]
  - NIGHTMARE [None]
  - THINKING ABNORMAL [None]
